FAERS Safety Report 19579860 (Version 2)
Quarter: 2021Q3

REPORT INFORMATION
  Report Type: Spontaneous
  Country: US (occurrence: US)
  Receive Date: 20210719
  Receipt Date: 20210820
  Transmission Date: 20211014
  Serious: No
  Sender: FDA-Public Use
  Company Number: US-GILEAD-2021-0540952

PATIENT
  Age: 61 Year
  Sex: Female

DRUGS (20)
  1. APPLE CIDER VINEGAR [Concomitant]
     Active Substance: APPLE CIDER VINEGAR
  2. MULTIVITAMINS [VITAMINS NOS] [Concomitant]
     Active Substance: VITAMINS
  3. PERCOCET [Concomitant]
     Active Substance: ACETAMINOPHEN\OXYCODONE HYDROCHLORIDE
  4. VITAMIN B12 [Concomitant]
     Active Substance: CYANOCOBALAMIN
  5. FEXOFENADINE HYDROCHLORIDE. [Concomitant]
     Active Substance: FEXOFENADINE HYDROCHLORIDE
  6. FAMOTIDINE. [Concomitant]
     Active Substance: FAMOTIDINE
  7. METAXALONE. [Concomitant]
     Active Substance: METAXALONE
  8. GINKOBA [Concomitant]
     Active Substance: GINKGO
  9. OMEGA 3 6 9 COMPLEX [Concomitant]
  10. OMEPRAZOLE. [Concomitant]
     Active Substance: OMEPRAZOLE
  11. ATORVASTATIN CALCIUM. [Concomitant]
     Active Substance: ATORVASTATIN CALCIUM
  12. MELATONIN [Concomitant]
     Active Substance: MELATONIN
  13. IBUPROFEN. [Concomitant]
     Active Substance: IBUPROFEN
  14. GENVOYA [Suspect]
     Active Substance: COBICISTAT\ELVITEGRAVIR\EMTRICITABINE\TENOFOVIR ALAFENAMIDE FUMARATE
     Indication: HIV INFECTION
     Dosage: 1 DOSAGE FORM, QD
     Route: 048
  15. HYDROCHLOROTHIAZIDE. [Concomitant]
     Active Substance: HYDROCHLOROTHIAZIDE
  16. MELOXICAM. [Concomitant]
     Active Substance: MELOXICAM
  17. GABAPENTIN. [Concomitant]
     Active Substance: GABAPENTIN
  18. KETOCONAZOLE. [Concomitant]
     Active Substance: KETOCONAZOLE
  19. ASPIRIN 81 [Concomitant]
     Active Substance: ASPIRIN
  20. AMLODIPINE BESYLATE. [Concomitant]
     Active Substance: AMLODIPINE BESYLATE

REACTIONS (1)
  - Product dose omission issue [Recovered/Resolved]
